FAERS Safety Report 6643231-2 (Version None)
Quarter: 2010Q1

REPORT INFORMATION
  Report Type: 
  Country: None (occurrence: None)
  Receive Date: 20100319
  Receipt Date: 20100309
  Transmission Date: 20100710
  Serious: Yes (Life-Threatening)
  Sender: FDA-Public Use
  Company Number: TR-ABBOTT-10P-161-0631276-00

PATIENT
  Age: 24 Year

DRUGS (5)
  1. DEPAKIN [Suspect]
     Indication: EPILEPSY
     Route: 042
     Dates: start: 20100207, end: 20100226
  2. PHENYTOIN SODIUM CAP [Suspect]
     Indication: EPILEPSY
     Route: 042
     Dates: start: 20100205, end: 20100226
  3. ROCEPHIN [Concomitant]
     Indication: DRUG USE FOR UNKNOWN INDICATION
     Dates: start: 20100220
  4. SULPERAZON [Concomitant]
     Indication: DRUG USE FOR UNKNOWN INDICATION
     Dates: start: 20100224
  5. PIPERACILLIN AND TAZOBACTAM [Concomitant]
     Indication: DRUG USE FOR UNKNOWN INDICATION
     Dates: start: 20100202, end: 20100216

REACTIONS (2)
  - NEUTROPENIA [None]
  - NEUTROPHIL COUNT DECREASED [None]
